FAERS Safety Report 5647000-1 (Version None)
Quarter: 2008Q1

REPORT INFORMATION
  Report Type: 
  Country: None (occurrence: None)
  Receive Date: 20080303
  Receipt Date: 20080228
  Transmission Date: 20080703
  Serious: Yes (Other)
  Sender: FDA-Public Use
  Company Number: B0509206A

PATIENT
  Age: 9 Year
  Sex: Male

DRUGS (3)
  1. LAMICTAL [Suspect]
     Indication: EPILEPSY
     Dosage: 25MG PER DAY
     Route: 065
     Dates: start: 20071201, end: 20080129
  2. LAMICTAL [Concomitant]
     Dosage: 35MG TWICE PER DAY
     Route: 065
  3. KEPPRA [Concomitant]
     Indication: EPILEPSY
     Route: 048

REACTIONS (2)
  - CONVULSION [None]
  - DRUG DISPENSING ERROR [None]
